FAERS Safety Report 9565334 (Version 2)
Quarter: 2014Q1

REPORT INFORMATION
  Report Type: Spontaneous
  Country: US (occurrence: US)
  Receive Date: 20130930
  Receipt Date: 20140128
  Transmission Date: 20141002
  Serious: No
  Sender: FDA-Public Use
  Company Number: US-009507513-1309USA014394

PATIENT
  Sex: Female
  Weight: 81.63 kg

DRUGS (4)
  1. CLARITIN [Suspect]
     Indication: RHINORRHOEA
     Dosage: 10 MG, QPM
     Route: 048
     Dates: start: 201310, end: 201311
  2. CLARITIN [Suspect]
     Indication: LACRIMATION INCREASED
  3. CLARITIN [Suspect]
     Indication: EYE PRURITUS
  4. CLARITIN [Suspect]
     Indication: SNEEZING

REACTIONS (1)
  - Drug ineffective [Unknown]
